FAERS Safety Report 4842478-5 (Version None)
Quarter: 2005Q4

REPORT INFORMATION
  Report Type: 
  Country: None (occurrence: None)
  Receive Date: 20051129
  Receipt Date: 20051116
  Transmission Date: 20060501
  Serious: Yes (Life-Threatening, Hospitalization, Other)
  Sender: FDA-Public Use
  Company Number: 2005120321

PATIENT
  Age: 76 Year
  Sex: Female
  Weight: 83.0083 kg

DRUGS (4)
  1. DETROL LA [Suspect]
     Indication: INCONTINENCE
     Dosage: 4 MG (4 MG, 1 IN 1 D), UNKNOWN
     Dates: start: 20040801
  2. NIACIN [Concomitant]
  3. LASIX [Concomitant]
  4. POTASSIUM (POTASSIUM) [Concomitant]

REACTIONS (5)
  - ARRHYTHMIA [None]
  - CARDIAC PROCEDURE COMPLICATION [None]
  - GASTROOESOPHAGEAL REFLUX DISEASE [None]
  - POST PROCEDURAL COMPLICATION [None]
  - THERAPY NON-RESPONDER [None]
